FAERS Safety Report 5974804-8 (Version None)
Quarter: 2008Q4

REPORT INFORMATION
  Report Type: 
  Country: None (occurrence: None)
  Receive Date: 20081201
  Receipt Date: 20081128
  Transmission Date: 20090506
  Serious: Yes (Death, Other)
  Sender: FDA-Public Use
  Company Number: NO-PFIZER INC-2008100467

PATIENT
  Sex: Female

DRUGS (7)
  1. MEDROL [Suspect]
     Indication: BREAST CANCER METASTATIC
     Route: 048
  2. VOLTAREN [Interacting]
     Indication: CANCER PAIN
     Route: 048
  3. AFIPRAN [Concomitant]
     Route: 048
  4. ACETAMINOPHEN [Concomitant]
     Route: 048
  5. DURAGESIC-100 [Concomitant]
     Route: 062
  6. DOLCONTIN [Concomitant]
     Dosage: TEXT:100 + 90 MG DAILY
     Route: 048
  7. CALCIUM ^SANDOZ^ [Concomitant]
     Route: 048

REACTIONS (3)
  - DEATH [None]
  - DRUG INTERACTION [None]
  - GASTRIC ULCER PERFORATION [None]
